FAERS Safety Report 14448972 (Version 9)
Quarter: 2020Q1

REPORT INFORMATION
  Report Type: Spontaneous
  Country: US (occurrence: US)
  Receive Date: 20180126
  Receipt Date: 20200310
  Transmission Date: 20200409
  Serious: Yes (Hospitalization, Other)
  Sender: FDA-Public Use
  Company Number: US-ACTELION-A-NJ2018-166579

PATIENT
  Age: 51 Year
  Sex: Female
  Weight: 113.38 kg

DRUGS (6)
  1. DIGOXIN. [Concomitant]
     Active Substance: DIGOXIN
  2. POTASSIUM CHLORIDE. [Concomitant]
     Active Substance: POTASSIUM CHLORIDE
     Dosage: UNK
     Route: 042
     Dates: start: 20190107
  3. SALINE [Concomitant]
     Active Substance: SODIUM CHLORIDE
     Dosage: UNK
     Route: 042
     Dates: start: 20190107
  4. OPSUMIT [Suspect]
     Active Substance: MACITENTAN
     Indication: PULMONARY ARTERIAL HYPERTENSION
     Dosage: 10 MG, QD
     Route: 048
     Dates: start: 20171005
  5. METOLAZONE. [Suspect]
     Active Substance: METOLAZONE
     Indication: DIURETIC THERAPY
     Dosage: UNK
     Route: 065
     Dates: start: 20171031
  6. ADCIRCA [Concomitant]
     Active Substance: TADALAFIL

REACTIONS (39)
  - Hypotension [Not Recovered/Not Resolved]
  - Dizziness [Unknown]
  - Therapeutic product ineffective [Unknown]
  - Blood lactic acid increased [Not Recovered/Not Resolved]
  - Dyspnoea [Not Recovered/Not Resolved]
  - Loss of personal independence in daily activities [Recovered/Resolved with Sequelae]
  - Atrial flutter [Recovered/Resolved]
  - Electrocardiogram PR prolongation [Not Recovered/Not Resolved]
  - Pulmonary amyloidosis [Unknown]
  - Fatigue [Not Recovered/Not Resolved]
  - Weight increased [Recovering/Resolving]
  - Pneumonia [Recovered/Resolved]
  - Anaemia [Recovered/Resolved]
  - Peripheral swelling [Recovering/Resolving]
  - Oxygen saturation decreased [Not Recovered/Not Resolved]
  - Bundle branch block right [Not Recovered/Not Resolved]
  - Dyspnoea exertional [Not Recovered/Not Resolved]
  - Metrorrhagia [Not Recovered/Not Resolved]
  - Oedema [Unknown]
  - Arrhythmia [Recovered/Resolved]
  - Palpitations [Recovering/Resolving]
  - Heart rate decreased [Not Recovered/Not Resolved]
  - Cardiac failure congestive [Recovered/Resolved]
  - Condition aggravated [Unknown]
  - Atrial tachycardia [Recovered/Resolved]
  - Menorrhagia [Not Recovered/Not Resolved]
  - Haemoglobin decreased [Recovered/Resolved]
  - Polymenorrhoea [Not Recovered/Not Resolved]
  - Sinus bradycardia [Not Recovered/Not Resolved]
  - Oedema peripheral [Recovered/Resolved]
  - Dehydration [Recovered/Resolved]
  - Transfusion [Recovered/Resolved]
  - Brain natriuretic peptide increased [Not Recovered/Not Resolved]
  - Hypokalaemia [Not Recovered/Not Resolved]
  - Abdominal pain [Not Recovered/Not Resolved]
  - Renal failure [Not Recovered/Not Resolved]
  - Cervix neoplasm [Not Recovered/Not Resolved]
  - Haematocrit decreased [Recovered/Resolved]
  - Atrioventricular block first degree [Not Recovered/Not Resolved]

NARRATIVE: CASE EVENT DATE: 20171016
